FAERS Safety Report 23643493 (Version 1)
Quarter: 2024Q1

REPORT INFORMATION
  Report Type: Spontaneous
  Country: US (occurrence: None)
  Receive Date: 20240316
  Receipt Date: 20240316
  Transmission Date: 20240409
  Serious: Yes (Hospitalization)
  Sender: FDA-Public Use
  Company Number: None

PATIENT
  Age: 79 Year
  Sex: Male
  Weight: 89.6 kg

DRUGS (2)
  1. TAXOTERE [Suspect]
     Active Substance: DOCETAXEL
     Dates: end: 20240216
  2. GEMCITABINE HYDROCHLORIDE [Suspect]
     Active Substance: GEMCITABINE HYDROCHLORIDE
     Dates: end: 20240216

REACTIONS (8)
  - Cerebrovascular accident [None]
  - Pulmonary embolism [None]
  - Brain stem ischaemia [None]
  - Blindness [None]
  - Cerebral infarction [None]
  - Ocular hyperaemia [None]
  - Eye pruritus [None]
  - Conjunctivitis [None]

NARRATIVE: CASE EVENT DATE: 20240312
